FAERS Safety Report 23688913 (Version 1)
Quarter: 2024Q1

REPORT INFORMATION
  Report Type: Spontaneous
  Country: US (occurrence: None)
  Receive Date: 20240329
  Receipt Date: 20240329
  Transmission Date: 20240410
  Serious: Yes (Death, Other)
  Sender: FDA-Public Use
  Company Number: 2024A073501

PATIENT

DRUGS (1)
  1. FARXIGA [Suspect]
     Active Substance: DAPAGLIFLOZIN PROPANEDIOL
     Route: 048
     Dates: start: 202206

REACTIONS (5)
  - Death [Fatal]
  - Cardiac failure [Unknown]
  - Renal disorder [Unknown]
  - Asthenia [Unknown]
  - Product dose omission issue [Unknown]
